FAERS Safety Report 19136236 (Version 1)
Quarter: 2021Q2

REPORT INFORMATION
  Report Type: Spontaneous
  Country: GB (occurrence: GB)
  Receive Date: 20210414
  Receipt Date: 20210414
  Transmission Date: 20210717
  Serious: Yes (Other)
  Sender: FDA-Public Use
  Company Number: NVSC2021GB075489

PATIENT
  Age: 64 Year
  Sex: Female

DRUGS (3)
  1. OMEPRAZOLE. [Concomitant]
     Active Substance: OMEPRAZOLE
     Indication: PRODUCT USED FOR UNKNOWN INDICATION
     Dosage: UNK
     Route: 065
  2. CLARITHROMYCIN SANDOZ [Suspect]
     Active Substance: CLARITHROMYCIN
     Indication: SKIN INFECTION
     Dosage: 500 MG
     Route: 048
     Dates: start: 20210302
  3. MIRTAZAPINE. [Concomitant]
     Active Substance: MIRTAZAPINE
     Indication: PRODUCT USED FOR UNKNOWN INDICATION
     Dosage: UNK
     Route: 065

REACTIONS (9)
  - Diarrhoea [Recovered/Resolved]
  - Dysgeusia [Recovered/Resolved]
  - Dizziness postural [Recovered/Resolved]
  - Tongue discomfort [Recovering/Resolving]
  - Abdominal pain [Recovered/Resolved]
  - Influenza like illness [Unknown]
  - Decreased appetite [Recovered/Resolved]
  - Insomnia [Recovered/Resolved]
  - Nausea [Recovered/Resolved]

NARRATIVE: CASE EVENT DATE: 20210303
